FAERS Safety Report 6570968-6 (Version None)
Quarter: 2010Q1

REPORT INFORMATION
  Report Type: 
  Country: None (occurrence: None)
  Receive Date: 20100204
  Receipt Date: 20100125
  Transmission Date: 20100710
  Serious: Yes (Hospitalization, Other)
  Sender: FDA-Public Use
  Company Number: PHHY2009DE46171

PATIENT
  Sex: Female
  Weight: 64 kg

DRUGS (1)
  1. ZOMETA [Suspect]
     Indication: PROPHYLAXIS
     Dosage: 4 MG EVERY 6 MONTHS
     Dates: start: 20081028, end: 20091020

REACTIONS (3)
  - COLECTOMY [None]
  - MEGACOLON [None]
  - PERITONITIS [None]
